FAERS Safety Report 8168450-8 (Version None)
Quarter: 2012Q1

REPORT INFORMATION
  Report Type: 
  Country: None (occurrence: None)
  Receive Date: 20120103
  Receipt Date: 20111103
  Transmission Date: 20120608
  Serious: No
  Sender: FDA-Public Use
  Company Number: AE-2011-003028

PATIENT
  Age: 54 Year
  Sex: Male
  Weight: 104.3273 kg

DRUGS (12)
  1. INVEGA [Concomitant]
  2. AMBIEN [Concomitant]
  3. SYNTHROID [Concomitant]
  4. PEGASYS [Concomitant]
  5. ATIVAN [Concomitant]
  6. INCIVEK [Suspect]
     Dosage: 2250 MG (750 MG, 3 IN 1 D), ORAL
     Route: 048
     Dates: start: 20111026
  7. ABILIFY [Concomitant]
  8. OMEPRAZOLE [Concomitant]
  9. METOPROLOL TARTRATE [Concomitant]
  10. LEXAPRO [Concomitant]
  11. RIBAVIRIN [Concomitant]
  12. NUCYNTA [Concomitant]

REACTIONS (1)
  - DIARRHOEA [None]
